FAERS Safety Report 7997467-9 (Version None)
Quarter: 2011Q4

REPORT INFORMATION
  Report Type: 
  Country: None (occurrence: None)
  Receive Date: 20111221
  Receipt Date: 20111221
  Transmission Date: 20120403
  Serious: Yes (Hospitalization)
  Sender: FDA-Public Use
  Company Number: None

PATIENT
  Age: 27 Year
  Sex: Female
  Weight: 55 kg

DRUGS (1)
  1. DEPAKOTE ER [Suspect]
     Dosage: 500MG
     Route: 048
     Dates: start: 20110805, end: 20110816

REACTIONS (1)
  - TARDIVE DYSKINESIA [None]
